FAERS Safety Report 4495225-3 (Version None)
Quarter: 2004Q4

REPORT INFORMATION
  Report Type: 
  Country: None (occurrence: None)
  Receive Date: 20041108
  Receipt Date: 20040714
  Transmission Date: 20050328
  Serious: No
  Sender: FDA-Public Use
  Company Number: US-GLAXOSMITHKLINE-A0518232A

PATIENT
  Age: 60 Year
  Sex: Female

DRUGS (2)
  1. AVANDAMET [Suspect]
     Dosage: 400MG TWICE PER DAY
     Route: 048
     Dates: start: 20030701
  2. CELEBREX [Concomitant]

REACTIONS (1)
  - ARTHRALGIA [None]
